FAERS Safety Report 7764924-X (Version None)
Quarter: 2011Q3

REPORT INFORMATION
  Report Type: 
  Country: None (occurrence: None)
  Receive Date: 20110921
  Receipt Date: 20110915
  Transmission Date: 20111222
  Serious: Yes (Hospitalization, Other)
  Sender: FDA-Public Use
  Company Number: US-ROCHE-792644

PATIENT
  Sex: Male
  Weight: 83.5 kg

DRUGS (1)
  1. ACCUTANE [Suspect]
     Indication: ACNE
     Dosage: DOSE: 40 MG BID, ON 06 APR 1989, ISOTRETINOIN WAS INCREASED TO 60 MG
     Route: 065
     Dates: start: 19890101, end: 19900630

REACTIONS (3)
  - GASTRIC ULCER [None]
  - INFLAMMATORY BOWEL DISEASE [None]
  - COLITIS ULCERATIVE [None]
